FAERS Safety Report 22270166 (Version 1)
Quarter: 2023Q2

REPORT INFORMATION
  Report Type: Spontaneous
  Country: US (occurrence: None)
  Receive Date: 20230428
  Receipt Date: 20230428
  Transmission Date: 20230722
  Serious: Yes (Other)
  Sender: FDA-Public Use
  Company Number: None

PATIENT
  Age: 55 Year
  Sex: Female
  Weight: 58.95 kg

DRUGS (1)
  1. CITROMA [Suspect]
     Active Substance: MAGNESIUM CITRATE
     Indication: Colonoscopy
     Dates: start: 20220118, end: 20220119

REACTIONS (2)
  - Vomiting [None]
  - Dehydration [None]

NARRATIVE: CASE EVENT DATE: 20220119
